FAERS Safety Report 7608608-7 (Version None)
Quarter: 2011Q3

REPORT INFORMATION
  Report Type: 
  Country: None (occurrence: None)
  Receive Date: 20110714
  Receipt Date: 20110706
  Transmission Date: 20111222
  Serious: No
  Sender: FDA-Public Use
  Company Number: PHHY2011US40215

PATIENT
  Sex: Male
  Weight: 82.313 kg

DRUGS (6)
  1. SILODOSIN [Concomitant]
  2. AMANTADINE HCL [Concomitant]
  3. PROVIGIL [Concomitant]
  4. AMINOPYRIDINE [Concomitant]
     Dosage: UNK
  5. GILENYA [Suspect]
     Indication: MULTIPLE SCLEROSIS
     Dosage: 0.5 MG, UNK
     Dates: start: 20110413
  6. SIMVASTATIN [Concomitant]

REACTIONS (2)
  - DIZZINESS [None]
  - FATIGUE [None]
